FAERS Safety Report 9369626 (Version 3)
Quarter: 2013Q3

REPORT INFORMATION
  Report Type: Spontaneous
  Country: JP (occurrence: JP)
  Receive Date: 20130626
  Receipt Date: 20130815
  Transmission Date: 20140515
  Serious: Yes (Hospitalization, Other)
  Sender: FDA-Public Use
  Company Number: JP-VERTEX PHARMACEUTICALS INC-2013-007457

PATIENT
  Age: 34 Year
  Sex: Male

DRUGS (9)
  1. OMEPRAZOLE [Suspect]
     Indication: PROPHYLAXIS
     Dosage: 20 MG, QD
     Route: 048
     Dates: start: 20130123, end: 20130607
  2. ZYLORIC [Suspect]
     Indication: ADVERSE REACTION
     Dosage: 200 MG, QD
     Route: 048
     Dates: start: 20130125, end: 20130506
  3. URSO [Concomitant]
     Dosage: 600 MG, QD
     Route: 048
     Dates: start: 20130218, end: 20130607
  4. URSO [Concomitant]
     Dosage: 300 MG, QD
     Route: 048
     Dates: start: 20130627
  5. TELAVIC [Suspect]
     Indication: CHRONIC HEPATITIS C
     Dosage: 2250 MG, QD
     Route: 048
     Dates: start: 20130122, end: 20130414
  6. PEGINTRON [Suspect]
     Indication: CHRONIC HEPATITIS C
     Dosage: 1.5 ?G/KG, QW
     Route: 058
     Dates: start: 20130122, end: 20130204
  7. PEGINTRON [Suspect]
     Dosage: 1.0 ?G/KG, QW
     Route: 058
     Dates: start: 20130212, end: 20130430
  8. REBETOL [Suspect]
     Indication: CHRONIC HEPATITIS C
     Dosage: 1000 MG, QD
     Route: 048
     Dates: start: 20130122, end: 20130506
  9. LOXONIN [Suspect]
     Indication: CONCOMITANT DISEASE PROGRESSION
     Dosage: 180 MG, QD
     Route: 048
     Dates: start: 20130123, end: 20130506

REACTIONS (4)
  - Ascites [Not Recovered/Not Resolved]
  - Jaundice [Not Recovered/Not Resolved]
  - Rash [Recovered/Resolved]
  - Hyperuricaemia [Recovered/Resolved]
